FAERS Safety Report 8518304-X (Version None)
Quarter: 2012Q3

REPORT INFORMATION
  Report Type: 
  Country: None (occurrence: None)
  Receive Date: 20120718
  Receipt Date: 20120112
  Transmission Date: 20120928
  Serious: Yes (Other)
  Sender: FDA-Public Use
  Company Number: US-BRISTOL-MYERS SQUIBB COMPANY-16347809

PATIENT

DRUGS (3)
  1. XARELTO [Suspect]
     Dosage: TABLET
     Route: 048
  2. LOVENOX [Suspect]
  3. COUMADIN [Suspect]
     Route: 048

REACTIONS (1)
  - HAEMORRHAGE [None]
